FAERS Safety Report 11006074 (Version 1)
Quarter: 2015Q2

REPORT INFORMATION
  Report Type: Report from Study
  Country: BR (occurrence: BR)
  Receive Date: 20150409
  Receipt Date: 20150409
  Transmission Date: 20150821
  Serious: Yes (Other)
  Sender: FDA-Public Use
  Company Number: PHHY2015BR040174

PATIENT
  Sex: Female

DRUGS (1)
  1. ACLASTA [Suspect]
     Active Substance: ZOLEDRONIC ACID
     Indication: OSTEOPOROSIS
     Dosage: UNK, (ONCE A YEAR)
     Route: 065
     Dates: start: 20140604

REACTIONS (5)
  - Procedural pain [Not Recovered/Not Resolved]
  - Intervertebral disc protrusion [Not Recovered/Not Resolved]
  - Concomitant disease progression [Not Recovered/Not Resolved]
  - Malaise [Not Recovered/Not Resolved]
  - Post procedural complication [Not Recovered/Not Resolved]
